FAERS Safety Report 25984025 (Version 2)
Quarter: 2025Q4

REPORT INFORMATION
  Report Type: Spontaneous
  Country: US (occurrence: US)
  Receive Date: 20251031
  Receipt Date: 20251106
  Transmission Date: 20260118
  Serious: Yes (Hospitalization, Other)
  Sender: BAXTER
  Company Number: US-BAXTER-2025BAX023122

PATIENT
  Age: 51 Year
  Sex: Male

DRUGS (2)
  1. CYCLOPHOSPHAMIDE [Suspect]
     Active Substance: CYCLOPHOSPHAMIDE
     Indication: Lymphodepletion
     Dosage: 60 MG/KG, QD
     Route: 042
     Dates: start: 20250511, end: 20250512
  2. FLUDARABINE [Suspect]
     Active Substance: FLUDARABINE PHOSPHATE
     Indication: Lymphodepletion
     Dosage: 25 MG/M2, QD
     Route: 042
     Dates: start: 20250513, end: 20250517

REACTIONS (6)
  - Severe acute respiratory syndrome [Unknown]
  - Cytokine release syndrome [Unknown]
  - Immune thrombocytopenia [Unknown]
  - Febrile neutropenia [Recovered/Resolved]
  - Pyrexia [Unknown]
  - Pyrexia [Unknown]

NARRATIVE: CASE EVENT DATE: 20251007
